FAERS Safety Report 19867262 (Version 1)
Quarter: 2021Q3

REPORT INFORMATION
  Report Type: Spontaneous
  Country: US (occurrence: US)
  Receive Date: 20210922
  Receipt Date: 20210922
  Transmission Date: 20211014
  Serious: Yes (Other)
  Sender: FDA-Public Use
  Company Number: US-GLAXOSMITHKLINE-US2021GSK200017

PATIENT
  Sex: Female

DRUGS (6)
  1. RANITIDINE HYDROCHLORIDE. [Suspect]
     Active Substance: RANITIDINE HYDROCHLORIDE
     Dosage: 75 MG AS NEEDED
     Route: 065
     Dates: start: 199001, end: 201802
  2. RANITIDINE CAPSULE [Suspect]
     Active Substance: RANITIDINE
     Dosage: 75 MG AS NEEDED
     Route: 065
     Dates: start: 199001, end: 201802
  3. ZANTAC [Suspect]
     Active Substance: RANITIDINE HYDROCHLORIDE
     Dosage: 75 MG AS NEEDED
     Route: 065
     Dates: start: 199001, end: 201802
  4. RANITIDINE. [Suspect]
     Active Substance: RANITIDINE
     Dosage: 75 MG AS NEEDED
     Route: 065
     Dates: start: 199001, end: 201802
  5. ZANTAC [Suspect]
     Active Substance: RANITIDINE HYDROCHLORIDE
     Dosage: 75 MG AS NEEDED
     Route: 065
     Dates: start: 199001, end: 201802
  6. RANITIDINE HYDROCHLORIDE. [Suspect]
     Active Substance: RANITIDINE HYDROCHLORIDE
     Dosage: 75 MG AS NEEDED
     Route: 065
     Dates: start: 199001, end: 201802

REACTIONS (1)
  - Breast cancer [Unknown]
